FAERS Safety Report 11879892 (Version 1)
Quarter: 2015Q4

REPORT INFORMATION
  Report Type: Spontaneous
  Country: FR (occurrence: FR)
  Receive Date: 20151230
  Receipt Date: 20151230
  Transmission Date: 20160305
  Serious: Yes (Hospitalization, Other)
  Sender: FDA-Public Use
  Company Number: FR-009507513-1309FRA012607

PATIENT
  Age: 4 Year
  Sex: Male
  Weight: 3.47 kg

DRUGS (17)
  1. COMBIVIR [Suspect]
     Active Substance: LAMIVUDINE\ZIDOVUDINE
     Indication: PRODUCT USED FOR UNKNOWN INDICATION
     Dosage: UNK
     Route: 064
     Dates: start: 199906
  2. CRIXIVAN [Suspect]
     Active Substance: INDINAVIR SULFATE
     Indication: PRODUCT USED FOR UNKNOWN INDICATION
     Dosage: UNK
     Route: 064
     Dates: start: 199906
  3. SPASFON [Concomitant]
     Active Substance: PHLOROGLUCINOL
  4. ZERIT [Suspect]
     Active Substance: STAVUDINE
     Indication: HIV INFECTION
     Dosage: UNK
     Route: 048
  5. BACTRIM [Concomitant]
     Active Substance: SULFAMETHOXAZOLE\TRIMETHOPRIM
  6. VIDEX [Suspect]
     Active Substance: DIDANOSINE
     Indication: HIV INFECTION
     Dosage: UNK
     Route: 048
     Dates: start: 2000, end: 2000
  7. ZERIT [Suspect]
     Active Substance: STAVUDINE
     Indication: PRODUCT USED FOR UNKNOWN INDICATION
     Route: 064
  8. VIRAMUNE [Suspect]
     Active Substance: NEVIRAPINE
     Indication: PRODUCT USED FOR UNKNOWN INDICATION
     Route: 064
  9. NORVIR [Suspect]
     Active Substance: RITONAVIR
     Indication: PRODUCT USED FOR UNKNOWN INDICATION
     Route: 064
  10. GYNO-PEVARYL [Concomitant]
     Active Substance: ECONAZOLE NITRATE
  11. LOXEN [Concomitant]
     Active Substance: NICARDIPINE HYDROCHLORIDE
  12. VIDEX [Suspect]
     Active Substance: DIDANOSINE
     Indication: PRODUCT USED FOR UNKNOWN INDICATION
     Route: 064
  13. RETROVIR [Suspect]
     Active Substance: ZIDOVUDINE
     Route: 064
  14. ALBUTEROL. [Concomitant]
     Active Substance: ALBUTEROL
  15. SUSTIVA [Suspect]
     Active Substance: EFAVIRENZ
     Indication: PRODUCT USED FOR UNKNOWN INDICATION
     Dosage: UNK
     Route: 064
     Dates: start: 199906
  16. VIRAMUNE [Suspect]
     Active Substance: NEVIRAPINE
     Indication: HIV INFECTION
     Dosage: UNK
     Route: 065
  17. INVIRASE [Suspect]
     Active Substance: SAQUINAVIR MESYLATE
     Route: 064

REACTIONS (19)
  - Gastrointestinal disorder [Recovered/Resolved]
  - Pyelonephritis [Recovered/Resolved]
  - Depression [Recovered/Resolved]
  - Neutropenia [Recovered/Resolved]
  - Haematochezia [Recovered/Resolved]
  - Speech disorder [Recovered/Resolved]
  - Aspartate aminotransferase increased [Recovered/Resolved]
  - Foetal exposure during pregnancy [Recovered/Resolved]
  - Abnormal behaviour [Recovered/Resolved]
  - Blood creatine phosphokinase increased [Recovered/Resolved]
  - Blood lactate dehydrogenase increased [Recovered/Resolved]
  - Cardiovascular disorder [Recovered/Resolved]
  - Electroencephalogram abnormal [Recovered/Resolved]
  - Segmented hyalinising vasculitis [Recovered/Resolved]
  - Hepatic enzyme increased [Recovered/Resolved]
  - Gastrointestinal haemorrhage [Recovered/Resolved]
  - Hypertriglyceridaemia [Recovered/Resolved]
  - Lipase increased [Recovered/Resolved]
  - Microcytosis [Recovered/Resolved]

NARRATIVE: CASE EVENT DATE: 200003
